FAERS Safety Report 17600999 (Version 1)
Quarter: 2020Q1

REPORT INFORMATION
  Report Type: Spontaneous
  Country: NL (occurrence: NL)
  Receive Date: 20200331
  Receipt Date: 20200331
  Transmission Date: 20200409
  Serious: Yes (Other)
  Sender: FDA-Public Use
  Company Number: NL-TEVA-2020-NL-1212431

PATIENT
  Age: 55 Year
  Sex: Male
  Weight: 81 kg

DRUGS (1)
  1. INDOMETACINE [Suspect]
     Active Substance: INDOMETHACIN
     Indication: MUSCULOSKELETAL DISCOMFORT
     Dosage: CAPSULE, 50 MG (MILLIGRAMS), 3 TIMES A DAY, 1
     Route: 065
     Dates: start: 20200207, end: 20200208

REACTIONS (1)
  - Haematochezia [Not Recovered/Not Resolved]

NARRATIVE: CASE EVENT DATE: 20200207
